FAERS Safety Report 5164793-0 (Version None)
Quarter: 2006Q4

REPORT INFORMATION
  Report Type: 
  Country: None (occurrence: None)
  Receive Date: 20061205
  Receipt Date: 20060501
  Transmission Date: 20070319
  Serious: Yes (Death, Hospitalization)
  Sender: FDA-Public Use
  Company Number: US-AVENTIS-200619591US

PATIENT
  Age: 54 Year
  Sex: Female

DRUGS (1)
  1. LOVENOX [Suspect]
     Indication: THROMBOSIS PROPHYLAXIS
     Dosage: DOSE: 30-40
     Dates: start: 20060101, end: 20060101

REACTIONS (6)
  - CARDIAC ARREST [None]
  - DEEP VEIN THROMBOSIS [None]
  - DYSPNOEA [None]
  - PULMONARY EMBOLISM [None]
  - RESPIRATORY ARREST [None]
  - SWELLING [None]
